FAERS Safety Report 19425285 (Version 1)
Quarter: 2021Q2

REPORT INFORMATION
  Report Type: Other
  Country: US (occurrence: US)
  Receive Date: 20210617
  Receipt Date: 20210617
  Transmission Date: 20210717
  Serious: No
  Sender: FDA-Public Use
  Company Number: US-ROCHE-2801909

PATIENT
  Age: 23 Year
  Sex: Male

DRUGS (4)
  1. TOCILIZUMAB. [Suspect]
     Active Substance: TOCILIZUMAB
     Indication: COVID-19 PNEUMONIA
     Route: 065
  2. ICOSAPENT ETHYL [Concomitant]
     Active Substance: ICOSAPENT ETHYL
     Route: 065
  3. REMDESIVIR. [Concomitant]
     Active Substance: REMDESIVIR
  4. EPOPROSTENOL. [Concomitant]
     Active Substance: EPOPROSTENOL
     Dates: end: 20200707

REACTIONS (2)
  - No adverse event [Unknown]
  - Off label use [Unknown]
